FAERS Safety Report 12206027 (Version 2)
Quarter: 2016Q2

REPORT INFORMATION
  Report Type: Spontaneous
  Country: US (occurrence: US)
  Receive Date: 20160323
  Receipt Date: 20160406
  Transmission Date: 20160815
  Serious: Yes (Other)
  Sender: FDA-Public Use
  Company Number: US-AMGEN-USASP2016035690

PATIENT
  Age: 35 Year
  Sex: Female

DRUGS (1)
  1. ENBREL [Suspect]
     Active Substance: ETANERCEPT
     Indication: PSORIATIC ARTHROPATHY
     Dosage: 25 MG, EVERY 72 HOURS
     Route: 065
     Dates: start: 2012

REACTIONS (4)
  - Unevaluable event [Unknown]
  - Immune system disorder [Unknown]
  - Pneumonia [Unknown]
  - Psoriatic arthropathy [Unknown]
